FAERS Safety Report 17077236 (Version 1)
Quarter: 2019Q4

REPORT INFORMATION
  Report Type: Other
  Country: US (occurrence: US)
  Receive Date: 20191126
  Receipt Date: 20191126
  Transmission Date: 20200122
  Serious: Yes (Other)
  Sender: FDA-Public Use
  Company Number: US-INTERCEPT-PM2019002058

PATIENT
  Sex: Female

DRUGS (1)
  1. OCALIVA [Suspect]
     Active Substance: OBETICHOLIC ACID
     Indication: PRIMARY BILIARY CHOLANGITIS
     Dosage: 10 MG, QD
     Route: 048

REACTIONS (7)
  - Blood cholesterol increased [Unknown]
  - Hepatic steatosis [Unknown]
  - Weight increased [Unknown]
  - Pruritus [Unknown]
  - Product prescribing error [Unknown]
  - Diabetes mellitus [Unknown]
  - Weight decreased [Unknown]
